FAERS Safety Report 14631338 (Version 1)
Quarter: 2018Q1

REPORT INFORMATION
  Report Type: Spontaneous
  Country: US (occurrence: US)
  Receive Date: 20180313
  Receipt Date: 20180313
  Transmission Date: 20180509
  Serious: Yes (Other)
  Sender: FDA-Public Use
  Company Number: US-PFIZER INC-2018097934

PATIENT
  Sex: Female
  Weight: 39.1 kg

DRUGS (2)
  1. MAXIPIME [Suspect]
     Active Substance: CEFEPIME HYDROCHLORIDE
     Indication: PERITONITIS
     Dosage: 1 G, DAILY
  2. HYDRALAZINE [Concomitant]
     Active Substance: HYDRALAZINE HYDROCHLORIDE
     Indication: BLOOD PRESSURE ABNORMAL
     Dosage: 25 MG, 2X/DAY

REACTIONS (3)
  - Overdose [Unknown]
  - Coma [Recovered/Resolved]
  - Cerebrovascular accident [Unknown]
